FAERS Safety Report 20640372 (Version 10)
Quarter: 2024Q3

REPORT INFORMATION
  Report Type: Spontaneous
  Country: US (occurrence: US)
  Receive Date: 20220327
  Receipt Date: 20240801
  Transmission Date: 20241016
  Serious: Yes (Hospitalization, Disabling, Other)
  Sender: SANOFI AVENTIS
  Company Number: US-SA-SAC20220318000248

PATIENT
  Age: 52 Year
  Sex: Female

DRUGS (8)
  1. DUPIXENT [Suspect]
     Active Substance: DUPILUMAB
     Indication: Dermatitis atopic
     Dosage: 300 MG, QOW
     Route: 058
     Dates: start: 20210521
  2. DUPIXENT [Suspect]
     Active Substance: DUPILUMAB
     Indication: Asthma
  3. DUPIXENT [Suspect]
     Active Substance: DUPILUMAB
     Indication: Rhinitis allergic
  4. LEVOTHYROXINE [Concomitant]
     Active Substance: LEVOTHYROXINE\LEVOTHYROXINE SODIUM
     Dosage: UNK
  5. CORTICOSTEROID NOS [Concomitant]
     Active Substance: CORTICOSTEROID NOS
     Dosage: UNK
  6. KLONOPIN [Concomitant]
     Active Substance: CLONAZEPAM
     Dosage: UNK
  7. STRATTERA [Concomitant]
     Active Substance: ATOMOXETINE HYDROCHLORIDE
     Dosage: UNK
  8. TRELEGY ELLIPTA [Concomitant]
     Active Substance: FLUTICASONE FUROATE\UMECLIDINIUM BROMIDE\VILANTEROL TRIFENATATE
     Dosage: UNK

REACTIONS (27)
  - Balance disorder [Unknown]
  - Immunoglobulin G4 related disease [Unknown]
  - Asthma [Unknown]
  - Impaired quality of life [Unknown]
  - Impaired quality of life [Not Recovered/Not Resolved]
  - Chronic obstructive pulmonary disease [Unknown]
  - Anxiety [Unknown]
  - Dyspnoea [Unknown]
  - Oral mucosal blistering [Unknown]
  - Depression [Unknown]
  - Fatigue [Unknown]
  - Initial insomnia [Unknown]
  - Fibromyalgia [Unknown]
  - Osteoarthritis [Unknown]
  - Dry mouth [Unknown]
  - Middle insomnia [Unknown]
  - Weight decreased [Unknown]
  - Asthenia [Unknown]
  - Disturbance in attention [Unknown]
  - Fall [Unknown]
  - Oropharyngeal pain [Unknown]
  - Asthma [Not Recovered/Not Resolved]
  - Drug ineffective [Unknown]
  - Eye irritation [Unknown]
  - Oral herpes [Unknown]
  - Dry eye [Unknown]
  - Product use in unapproved indication [Unknown]

NARRATIVE: CASE EVENT DATE: 20230501
